FAERS Safety Report 5102215-6 (Version None)
Quarter: 2006Q3

REPORT INFORMATION
  Report Type: 
  Country: None (occurrence: None)
  Receive Date: 20060912
  Receipt Date: 20060907
  Transmission Date: 20061208
  Serious: Yes (Death)
  Sender: FDA-Public Use
  Company Number: 2006UW17571

PATIENT
  Sex: Male

DRUGS (2)
  1. SEROQUEL [Suspect]
     Route: 048
     Dates: start: 20060826, end: 20060826
  2. WELLBUTRIN [Concomitant]
     Dates: start: 20060827, end: 20060827

REACTIONS (2)
  - COMPLETED SUICIDE [None]
  - HYPERSOMNIA [None]
